FAERS Safety Report 4534830-2 (Version None)
Quarter: 2004Q4

REPORT INFORMATION
  Report Type: 
  Country: None (occurrence: None)
  Receive Date: 20041222
  Receipt Date: 20040408
  Transmission Date: 20050328
  Serious: No
  Sender: FDA-Public Use
  Company Number: US-BRISTOL-MYERS SQUIBB COMPANY-12555603

PATIENT
  Sex: Male
  Weight: 68 kg

DRUGS (5)
  1. PRAVACHOL [Suspect]
     Indication: HYPERCHOLESTEROLAEMIA
     Dosage: THERAPY WITHDRAWN, THEN RESTARTED IN SEP-2003
     Route: 048
     Dates: start: 20030301
  2. LOPRESSOR [Concomitant]
  3. PREVACID [Concomitant]
  4. ASPIRIN [Concomitant]
  5. RESTORIL [Concomitant]

REACTIONS (1)
  - PAIN IN EXTREMITY [None]
